FAERS Safety Report 5668702-7 (Version None)
Quarter: 2008Q1

REPORT INFORMATION
  Report Type: 
  Country: None (occurrence: None)
  Receive Date: 20080316
  Receipt Date: 20080304
  Transmission Date: 20080703
  Serious: Yes (Hospitalization, Other)
  Sender: FDA-Public Use
  Company Number: NSADSS2001035417

PATIENT
  Age: 51 Year
  Sex: Female

DRUGS (8)
  1. REMICADE [Suspect]
     Route: 041
     Dates: start: 20010509
  2. REMICADE [Suspect]
     Route: 041
     Dates: start: 20010509
  3. REMICADE [Suspect]
     Indication: RHEUMATOID ARTHRITIS
     Route: 041
     Dates: start: 20010509
  4. METHOTREXATE [Suspect]
     Dates: start: 20010523
  5. METHOTREXATE [Suspect]
     Indication: RHEUMATOID ARTHRITIS
     Dates: start: 20010523
  6. METHYLPREDNISOLONE [Suspect]
     Indication: RHEUMATOID ARTHRITIS
  7. INDOMETHACIN [Concomitant]
  8. DICLOFENAC SODIUM [Concomitant]

REACTIONS (6)
  - ANAEMIA [None]
  - BRUCELLOSIS [None]
  - HEPATIC ENZYME INCREASED [None]
  - HYPERBILIRUBINAEMIA [None]
  - THERAPEUTIC RESPONSE DECREASED [None]
  - THROMBOCYTOPENIA [None]
